FAERS Safety Report 21512980 (Version 2)
Quarter: 2022Q4

REPORT INFORMATION
  Report Type: Spontaneous
  Country: US (occurrence: US)
  Receive Date: 20221027
  Receipt Date: 20221130
  Transmission Date: 20230112
  Serious: No
  Sender: FDA-Public Use
  Company Number: US-AIMMUNE THERAPEUTICS, INC.-2022AIMT02648

PATIENT

DRUGS (8)
  1. PALFORZIA [Suspect]
     Active Substance: PEANUT
     Indication: Food allergy
     Dosage: IDE (0.5-6MG), ONCE
     Route: 048
  2. PALFORZIA [Suspect]
     Active Substance: PEANUT
     Dosage: 80 MG, 1X/DAY
     Route: 048
     Dates: start: 20220901
  3. PALFORZIA [Suspect]
     Active Substance: PEANUT
     Dosage: 80 MG, ONCE, LAST DOSE PRIOR TO EVENT
     Route: 048
     Dates: start: 2022, end: 2022
  4. PALFORZIA [Suspect]
     Active Substance: PEANUT
     Dosage: 40 MG, ONCE, DOSE DECREASED
     Route: 048
  5. FLUTICASONE [Concomitant]
     Active Substance: FLUTICASONE
     Indication: Product used for unknown indication
     Dosage: 50 ?G
  6. MONTELUKAST [Concomitant]
     Active Substance: MONTELUKAST SODIUM
     Indication: Product used for unknown indication
     Dosage: 10 MG
  7. OLOPATADINE [Concomitant]
     Active Substance: OLOPATADINE
     Indication: Product used for unknown indication
     Dosage: 0.1 %
  8. ZYRTEC [Concomitant]
     Active Substance: CETIRIZINE HYDROCHLORIDE
     Indication: Product used for unknown indication
     Dosage: 10 MG

REACTIONS (1)
  - Abdominal pain [Unknown]
